FAERS Safety Report 10677426 (Version 1)
Quarter: 2014Q4

REPORT INFORMATION
  Report Type: Spontaneous
  Country: FR (occurrence: FR)
  Receive Date: 20141227
  Receipt Date: 20141227
  Transmission Date: 20150529
  Serious: Yes (Other)
  Sender: FDA-Public Use
  Company Number: FR-SA-2014SA175992

PATIENT
  Age: 43 Year
  Sex: Female

DRUGS (7)
  1. UN-ALFA [Concomitant]
     Route: 048
  2. LEVOTHYROX [Concomitant]
     Active Substance: LEVOTHYROXINE
     Route: 048
  3. RENVELA [Suspect]
     Active Substance: SEVELAMER CARBONATE
     Indication: HYPERPHOSPHATAEMIA
     Dosage: 800 MG; 1 DF, 4 TIMES DAILY
     Route: 048
     Dates: start: 20141003
  4. KALEORID [Concomitant]
     Active Substance: POTASSIUM CHLORIDE
     Route: 048
  5. BURINEX [Concomitant]
     Active Substance: BUMETANIDE
     Route: 048
  6. SPECIAFOLDINE [Concomitant]
     Active Substance: FOLIC ACID
     Route: 048
  7. MIMPARA [Concomitant]
     Active Substance: CINACALCET HYDROCHLORIDE
     Route: 048

REACTIONS (2)
  - Dyspepsia [Recovered/Resolved]
  - Gastrooesophageal reflux disease [Recovered/Resolved]

NARRATIVE: CASE EVENT DATE: 201410
